FAERS Safety Report 4937598-0 (Version None)
Quarter: 2006Q1

REPORT INFORMATION
  Report Type: 
  Country: None (occurrence: None)
  Receive Date: 20060309
  Receipt Date: 20050113
  Transmission Date: 20060701
  Serious: Yes (Hospitalization, Disabling)
  Sender: FDA-Public Use
  Company Number: US-MERCK-0501USA02238

PATIENT
  Age: 57 Year
  Sex: Male
  Weight: 118 kg

DRUGS (2)
  1. VIOXX [Suspect]
     Indication: ARTHRALGIA
     Route: 048
     Dates: start: 20011001, end: 20021101
  2. VIOXX [Suspect]
     Route: 048
     Dates: start: 20011001, end: 20021101

REACTIONS (3)
  - ARTHROPATHY [None]
  - CEREBROVASCULAR ACCIDENT [None]
  - MUSCLE SPASMS [None]
